FAERS Safety Report 9053959 (Version 1)
Quarter: 2013Q1

REPORT INFORMATION
  Report Type: Report from Study
  Country: DE (occurrence: DE)
  Receive Date: 20130208
  Receipt Date: 20130208
  Transmission Date: 20140127
  Serious: Yes (Death)
  Sender: FDA-Public Use
  Company Number: PHHY2013DE008308

PATIENT
  Age: 84 Year
  Sex: Male

DRUGS (1)
  1. ICL670A [Suspect]
     Indication: MYELODYSPLASTIC SYNDROME
     Dosage: 125 MG, 1X/DAY (1,8MG/KG/BW/DAY)
     Route: 048
     Dates: start: 20120903

REACTIONS (1)
  - Death [Fatal]
